FAERS Safety Report 5675490-7 (Version None)
Quarter: 2008Q2

REPORT INFORMATION
  Report Type: 
  Country: None (occurrence: None)
  Receive Date: 20080313
  Receipt Date: 20070523
  Transmission Date: 20081010
  Serious: Yes (Other)
  Sender: FDA-Public Use
  Company Number: 2-0507-03

PATIENT
  Age: 35 Year
  Sex: Male

DRUGS (4)
  1. DERMA-SMOOTHE/FS SCALP OIL [Suspect]
     Indication: ALOPECIA SCARRING
     Dosage: TOPICAL
     Route: 061
  2. CLOBETASOL PROPIONATE [Concomitant]
  3. NIOXIN HAI PRODUCTS [Concomitant]
  4. CAPEX [Concomitant]

REACTIONS (1)
  - BLOOD GLUCOSE DECREASED [None]
